FAERS Safety Report 6298592-3 (Version None)
Quarter: 2009Q3

REPORT INFORMATION
  Report Type: 
  Country: None (occurrence: None)
  Receive Date: 20090805
  Receipt Date: 20090730
  Transmission Date: 20100115
  Serious: Yes (Other)
  Sender: FDA-Public Use
  Company Number: US-AMGEN-QUU354695

PATIENT
  Sex: Male
  Weight: 95.3 kg

DRUGS (8)
  1. ENBREL [Suspect]
     Indication: RHEUMATOID ARTHRITIS
     Route: 058
     Dates: start: 20050701
  2. ZESTRIL [Concomitant]
  3. JANUVIA [Concomitant]
  4. SALSALATE [Concomitant]
  5. ANTIHYPERTENSIVES [Concomitant]
  6. NEBIVOLOL [Concomitant]
  7. FUROSEMIDE [Concomitant]
  8. ACETYLSALICYLIC ACID W/MAGNESIUM [Concomitant]

REACTIONS (1)
  - EYE DISORDER [None]
